FAERS Safety Report 18188219 (Version 3)
Quarter: 2020Q3

REPORT INFORMATION
  Report Type: Report from Study
  Country: DE (occurrence: DE)
  Receive Date: 20200824
  Receipt Date: 20200911
  Transmission Date: 20201103
  Serious: Yes (Hospitalization, Other)
  Sender: FDA-Public Use
  Company Number: DE-BRISTOL-MYERS SQUIBB COMPANY-BMS-2020-021013

PATIENT
  Age: 65 Year
  Sex: Male

DRUGS (31)
  1. FENTANYL. [Concomitant]
     Active Substance: FENTANYL
     Indication: NEOPLASM
     Dosage: 0.025 MG/H, EVERY THIRD DAY
     Route: 065
     Dates: end: 20200212
  2. FENTANYL. [Concomitant]
     Active Substance: FENTANYL
     Dosage: 0.0125 MG/H, EVERY THIRD DAY
     Route: 065
     Dates: start: 20200520, end: 202007
  3. SIMVASTATIN. [Concomitant]
     Active Substance: SIMVASTATIN
     Indication: PRODUCT USED FOR UNKNOWN INDICATION
     Dosage: 20 MILLIGRAM
     Route: 065
  4. CANDESARTAN. [Concomitant]
     Active Substance: CANDESARTAN
     Indication: CEREBROVASCULAR DISORDER
     Dosage: 32 MILLIGRAM
     Route: 065
     Dates: end: 20200819
  5. CANDESARTAN. [Concomitant]
     Active Substance: CANDESARTAN
     Indication: CARDIOVASCULAR DISORDER
  6. LEVOTHYROXIN [Concomitant]
     Active Substance: LEVOTHYROXINE
     Dosage: 0.150 MILLIGRAM
     Route: 065
     Dates: start: 20200617, end: 20200630
  7. PREGABALIN. [Concomitant]
     Active Substance: PREGABALIN
     Indication: NEOPLASM
     Dosage: 7 MILLILITER
     Route: 065
     Dates: start: 20200115, end: 20200212
  8. ESOMEPRAZOL [ESOMEPRAZOLE] [Concomitant]
     Active Substance: ESOMEPRAZOLE
     Indication: PROPHYLAXIS
     Dosage: 40 MILLIGRAM
     Route: 065
  9. FENTANYL. [Concomitant]
     Active Substance: FENTANYL
     Dosage: 0.075 MG/H, EVERY THIRD DAY
     Route: 065
     Dates: start: 202007
  10. NATRIUMCHLORIDE [Concomitant]
     Active Substance: SODIUM CHLORIDE
     Indication: PRODUCT USED FOR UNKNOWN INDICATION
     Dosage: 2000 MILLIGRAM
     Route: 065
     Dates: end: 20200212
  11. ASPIRIN. [Concomitant]
     Active Substance: ASPIRIN
     Indication: CARDIOVASCULAR DISORDER
  12. LEVOTHYROXIN [Concomitant]
     Active Substance: LEVOTHYROXINE
     Dosage: 0.175 MILLIGRAM
     Route: 065
     Dates: start: 20200701
  13. EISEN [IRON] [Concomitant]
     Active Substance: IRON
     Indication: NEOPLASM
     Dosage: 140 GTT
     Route: 065
     Dates: start: 20200115
  14. AMINEURIN [Concomitant]
     Active Substance: AMITRIPTYLINE HYDROCHLORIDE
     Indication: PRODUCT USED FOR UNKNOWN INDICATION
     Dosage: 25 MILLIGRAM
     Route: 065
     Dates: start: 20200819
  15. BENZYDAMINE HCL [Concomitant]
     Indication: NEOPLASM
     Dosage: UNK, AFTER EVERY MEAL
     Route: 065
  16. FENTANYL. [Concomitant]
     Active Substance: FENTANYL
     Dosage: 0.1 MG, DAILY, IN CASE OF PAIN
     Route: 065
  17. FENTANYL. [Concomitant]
     Active Substance: FENTANYL
     Dosage: 0.0125 MG/H, EVERY THIRD DAY
     Route: 065
     Dates: start: 20200212, end: 20200407
  18. PREGABALIN. [Concomitant]
     Active Substance: PREGABALIN
     Dosage: 150 MILLIGRAM
     Route: 065
     Dates: start: 20200212, end: 202007
  19. NIVOLUMAB [Suspect]
     Active Substance: NIVOLUMAB
     Indication: SQUAMOUS CELL CARCINOMA OF HEAD AND NECK
     Dosage: 240 MILLIGRAM, Q2WK
     Route: 042
     Dates: start: 20200115, end: 20200701
  20. ASPIRIN. [Concomitant]
     Active Substance: ASPIRIN
     Indication: CEREBROVASCULAR DISORDER
     Dosage: 100 MILLIGRAM
     Route: 065
  21. LEVOTHYROXIN [Concomitant]
     Active Substance: LEVOTHYROXINE
     Dosage: 0.075 MILLIGRAM
     Route: 065
     Dates: start: 20200130, end: 20200311
  22. PREGABALIN. [Concomitant]
     Active Substance: PREGABALIN
     Dosage: 300 MILLIGRAM
     Route: 065
     Dates: start: 202007
  23. NOVAMIN [AMIKACIN SULFATE] [Concomitant]
     Indication: PRODUCT USED FOR UNKNOWN INDICATION
     Dosage: 130 GTT
     Route: 065
     Dates: start: 202007
  24. AMLODIPINE [Concomitant]
     Active Substance: AMLODIPINE BESYLATE
     Indication: CEREBROVASCULAR DISORDER
     Dosage: 10 MILLIGRAM
     Route: 065
     Dates: end: 20200129
  25. AMLODIPINE [Concomitant]
     Active Substance: AMLODIPINE BESYLATE
     Indication: CARDIOVASCULAR DISORDER
     Dosage: 5 MILLIGRAM
     Route: 065
     Dates: start: 20200130, end: 20200819
  26. FENTANYL. [Concomitant]
     Active Substance: FENTANYL
     Dosage: 0.05 MG/H
     Route: 065
     Dates: start: 20200408, end: 202007
  27. LEVOTHYROXIN [Concomitant]
     Active Substance: LEVOTHYROXINE
     Indication: PRODUCT USED FOR UNKNOWN INDICATION
     Dosage: 0.05 MILLIGRAM
     Route: 065
     Dates: end: 20200129
  28. LEVOTHYROXIN [Concomitant]
     Active Substance: LEVOTHYROXINE
     Dosage: 0.125 MILLIGRAM
     Route: 065
     Dates: start: 20200311, end: 20200616
  29. MORPHINE SULFATE. [Concomitant]
     Active Substance: MORPHINE SULFATE
     Indication: NEOPLASM
     Dosage: 1?4 TGL, DAILY, IN CASE OF PAIN
     Route: 065
  30. SODIUM PICOSULFATE [Concomitant]
     Active Substance: SODIUM PICOSULFATE
     Indication: PRODUCT USED FOR UNKNOWN INDICATION
     Dosage: 15 GTT, DAILY, AS NEEDED
     Route: 065
  31. METAMIZOL [Concomitant]
     Active Substance: METAMIZOLE SODIUM
     Indication: NEOPLASM
     Dosage: 140 GGT
     Route: 065
     Dates: end: 202007

REACTIONS (11)
  - Dry skin [Unknown]
  - Gamma-glutamyltransferase increased [Unknown]
  - Pneumonia [Unknown]
  - Middle ear effusion [Recovered/Resolved]
  - Stomatitis [Not Recovered/Not Resolved]
  - Infected neoplasm [Unknown]
  - Hypomagnesaemia [Recovered/Resolved]
  - Lymphoedema [Unknown]
  - Lung infiltration [Unknown]
  - Hyponatraemia [Unknown]
  - Decubitus ulcer [Unknown]

NARRATIVE: CASE EVENT DATE: 20200129
